FAERS Safety Report 9559986 (Version 1)
Quarter: 2013Q3

REPORT INFORMATION
  Report Type: Spontaneous
  Country: GB (occurrence: None)
  Receive Date: 20130924
  Receipt Date: 20130924
  Transmission Date: 20140515
  Serious: Yes (Other)
  Sender: FDA-Public Use
  Company Number: AUR-APL-2013-07657

PATIENT
  Age: 47 Year
  Sex: Male

DRUGS (5)
  1. RIBAVIRIN [Suspect]
     Indication: HEPATITIS C
     Route: 048
     Dates: start: 20121130
  2. PEGINTERFERON ALFA-2B [Suspect]
     Indication: HEPATITIS C
     Dates: start: 20121130
  3. INCIVO [Suspect]
     Indication: HEPATITIS C
     Route: 048
     Dates: start: 20121130
  4. GABAPENTIN (GABAPENTIN) [Concomitant]
  5. OMEPRAZOLE (OMEPRAZOLE) [Concomitant]

REACTIONS (4)
  - Hepatic pain [None]
  - Headache [None]
  - Abdominal pain [None]
  - Condition aggravated [None]
